FAERS Safety Report 15107305 (Version 1)
Quarter: 2018Q3

REPORT INFORMATION
  Report Type: Spontaneous
  Country: US (occurrence: US)
  Receive Date: 20180704
  Receipt Date: 20180704
  Transmission Date: 20181010
  Serious: No
  Sender: FDA-Public Use
  Company Number: US-PFIZER INC-2018268189

PATIENT
  Sex: Female

DRUGS (1)
  1. ADVIL LIQUI?GELS [Suspect]
     Active Substance: IBUPROFEN
     Dosage: UNK
     Dates: start: 201806, end: 20180702

REACTIONS (2)
  - Drug effect incomplete [Not Recovered/Not Resolved]
  - Diarrhoea [Not Recovered/Not Resolved]

NARRATIVE: CASE EVENT DATE: 201806
